FAERS Safety Report 19131454 (Version 1)
Quarter: 2021Q2

REPORT INFORMATION
  Report Type: Spontaneous
  Country: CN (occurrence: CN)
  Receive Date: 20210413
  Receipt Date: 20210413
  Transmission Date: 20210717
  Serious: Yes (Other)
  Sender: FDA-Public Use
  Company Number: CN-PFIZER INC-2021373529

PATIENT
  Age: 62 Year
  Sex: Male

DRUGS (6)
  1. ASPIRIN [ACETYLSALICYLIC ACID] [Suspect]
     Active Substance: ASPIRIN
     Indication: CEREBROVASCULAR DISORDER
     Dosage: 1 DF, 1X/DAY
     Route: 048
     Dates: start: 20210304, end: 20210315
  2. MECOBALAMIN [Suspect]
     Active Substance: METHYLCOBALAMIN
     Indication: CEREBROVASCULAR DISORDER
     Dosage: 1 DF, 3X/DAY
     Route: 048
     Dates: start: 20210304, end: 20210314
  3. METHYLPREDNISOLONE. [Suspect]
     Active Substance: METHYLPREDNISOLONE
     Indication: CEREBROVASCULAR DISORDER
     Dosage: 10 DF, 1X/DAY
     Route: 048
     Dates: start: 20210304, end: 20210310
  4. ESOMEPRAZOLE. [Suspect]
     Active Substance: ESOMEPRAZOLE MAGNESIUM
     Indication: GASTRITIS
     Dosage: 1 DF, 1X/DAY
     Route: 048
     Dates: start: 20210304, end: 20210315
  5. LIPITOR [Suspect]
     Active Substance: ATORVASTATIN CALCIUM
     Indication: CEREBROVASCULAR DISORDER
     Dosage: 1 DF, 1X/DAY
     Route: 048
     Dates: start: 20210304, end: 20210315
  6. XUE SAI TONG [Suspect]
     Active Substance: HERBALS\PANAX NOTOGINSENG ROOT EXTRACT
     Indication: CEREBROVASCULAR DISORDER
     Dosage: 2 DF, 1X/DAY
     Route: 042
     Dates: start: 20210304, end: 20210315

REACTIONS (5)
  - Off label use [Unknown]
  - Pyrexia [Recovered/Resolved]
  - Rash [Recovered/Resolved]
  - Drug hypersensitivity [Recovering/Resolving]
  - Pruritus [Unknown]

NARRATIVE: CASE EVENT DATE: 20210304
